FAERS Safety Report 26217180 (Version 1)
Quarter: 2025Q4

REPORT INFORMATION
  Report Type: Spontaneous
  Country: EU (occurrence: EU)
  Receive Date: 20251231
  Receipt Date: 20251231
  Transmission Date: 20260118
  Serious: Yes (Other)
  Sender: AUROBINDO
  Company Number: EU-AstrazenecaRSG-7001-D926QC00001(Prod)000005

PATIENT
  Age: 51 Year
  Sex: Female
  Weight: 65 kg

DRUGS (38)
  1. CARBOPLATIN [Suspect]
     Active Substance: CARBOPLATIN
     Indication: Product used for unknown indication
     Dosage: 1.5 UNK
     Route: 065
     Dates: start: 20250731, end: 20250731
  2. CARBOPLATIN [Suspect]
     Active Substance: CARBOPLATIN
     Dosage: 1.5 UNK
     Route: 065
     Dates: start: 20250904, end: 20250904
  3. CARBOPLATIN [Suspect]
     Active Substance: CARBOPLATIN
     Dosage: 1.5 UNK
     Dates: start: 20250918, end: 20250918
  4. CARBOPLATIN [Suspect]
     Active Substance: CARBOPLATIN
     Dosage: 1.5 UNK
     Route: 065
     Dates: start: 20250724, end: 20250724
  5. CARBOPLATIN [Suspect]
     Active Substance: CARBOPLATIN
     Dosage: 1.5 UNK
     Route: 065
     Dates: start: 20250821, end: 20250821
  6. CARBOPLATIN [Suspect]
     Active Substance: CARBOPLATIN
     Dosage: 1.5 UNK
     Route: 065
     Dates: start: 20250710, end: 20250710
  7. CARBOPLATIN [Suspect]
     Active Substance: CARBOPLATIN
     Dosage: 1.5 UNK
     Route: 065
     Dates: start: 20250717, end: 20250717
  8. CARBOPLATIN [Suspect]
     Active Substance: CARBOPLATIN
     Dosage: 1.5 UNK
     Route: 065
     Dates: start: 20250829, end: 20250829
  9. CARBOPLATIN [Suspect]
     Active Substance: CARBOPLATIN
     Dosage: 1.5 UNK
     Route: 065
     Dates: start: 20250814, end: 20250814
  10. CARBOPLATIN [Suspect]
     Active Substance: CARBOPLATIN
     Dosage: 1.5 UNK
     Route: 065
     Dates: start: 20250807, end: 20250807
  11. CARBOPLATIN [Suspect]
     Active Substance: CARBOPLATIN
     Dosage: 1.5 UNK
     Route: 065
  12. EPIRUBICIN [Suspect]
     Active Substance: EPIRUBICIN
     Indication: Non-small cell lung cancer
     Dosage: 90 MG/M2
     Route: 065
     Dates: start: 20251107, end: 20251107
  13. EPIRUBICIN [Suspect]
     Active Substance: EPIRUBICIN
     Dosage: 90 MG/M2
     Route: 065
     Dates: start: 20251017, end: 20251017
  14. PACLITAXEL [Suspect]
     Active Substance: PACLITAXEL
     Indication: Non-small cell lung cancer
     Dosage: 80 MG/M2
     Route: 065
     Dates: start: 20250731, end: 20250731
  15. PACLITAXEL [Suspect]
     Active Substance: PACLITAXEL
     Dosage: 80 MG/M2
     Route: 065
     Dates: start: 20250710, end: 20250710
  16. PACLITAXEL [Suspect]
     Active Substance: PACLITAXEL
     Dosage: 80 MG/M2
     Route: 065
     Dates: start: 20250717, end: 20250717
  17. PACLITAXEL [Suspect]
     Active Substance: PACLITAXEL
     Dosage: 80 MG/M2
     Route: 065
     Dates: start: 20250904, end: 20250904
  18. PACLITAXEL [Suspect]
     Active Substance: PACLITAXEL
     Dosage: 80 MG/M2
     Route: 065
     Dates: start: 20250814, end: 20250814
  19. PACLITAXEL [Suspect]
     Active Substance: PACLITAXEL
     Dosage: 80 MG/M2
     Route: 065
     Dates: start: 20250829, end: 20250829
  20. PACLITAXEL [Suspect]
     Active Substance: PACLITAXEL
     Dosage: 80 MG/M2
     Route: 065
     Dates: start: 20250821, end: 20250821
  21. PACLITAXEL [Suspect]
     Active Substance: PACLITAXEL
     Dosage: 80 MG/M2
     Route: 065
     Dates: start: 20250724, end: 20250724
  22. PACLITAXEL [Suspect]
     Active Substance: PACLITAXEL
     Dosage: 80 MG/M2
     Route: 065
     Dates: start: 20250807, end: 20250807
  23. PACLITAXEL [Suspect]
     Active Substance: PACLITAXEL
     Dosage: 80 MG/M2
  24. PEMBROLIZUMAB [Suspect]
     Active Substance: PEMBROLIZUMAB
     Indication: Non-small cell lung cancer
     Dosage: 200 MILLIGRAM
     Route: 065
     Dates: start: 20250911, end: 20250911
  25. PEMBROLIZUMAB [Suspect]
     Active Substance: PEMBROLIZUMAB
     Dosage: 200 MILLIGRAM
     Dates: start: 20250710, end: 20250710
  26. PEMBROLIZUMAB [Suspect]
     Active Substance: PEMBROLIZUMAB
     Dosage: 200 MILLIGRAM
     Route: 065
     Dates: start: 20251017, end: 20251017
  27. PEMBROLIZUMAB [Suspect]
     Active Substance: PEMBROLIZUMAB
     Dosage: 200 MILLIGRAM
     Route: 065
     Dates: start: 20250731, end: 20250731
  28. PEMBROLIZUMAB [Suspect]
     Active Substance: PEMBROLIZUMAB
     Dosage: 200 MILLIGRAM
     Route: 065
     Dates: start: 20250821, end: 20250821
  29. PEMBROLIZUMAB [Suspect]
     Active Substance: PEMBROLIZUMAB
     Dosage: 200 MILLIGRAM
     Route: 065
  30. CYCLOPHOSPHAMIDE [Suspect]
     Active Substance: CYCLOPHOSPHAMIDE
     Indication: Non-small cell lung cancer
     Dosage: 600 MG/M2
     Route: 065
     Dates: start: 20251017, end: 20251017
  31. CYCLOPHOSPHAMIDE [Suspect]
     Active Substance: CYCLOPHOSPHAMIDE
     Dosage: 600 MG/M2
     Route: 065
     Dates: start: 20251107, end: 20251107
  32. PREGABALIN [Concomitant]
     Active Substance: PREGABALIN
     Indication: Product used for unknown indication
     Dosage: 100 MILLIGRAM, ONCE A DAY
     Route: 061
     Dates: start: 20250829, end: 20251009
  33. ACETYLCYSTEINE [Concomitant]
     Active Substance: ACETYLCYSTEINE
     Indication: Nasopharyngitis
     Dosage: 600 MILLIGRAM, ONCE A DAY
     Route: 061
     Dates: start: 20250812
  34. LEVOTHYROXINE SODIUM [Concomitant]
     Active Substance: LEVOTHYROXINE SODIUM
     Indication: Thyroidectomy
     Dosage: 75 MICROGRAM, ONCE A DAY
     Route: 061
     Dates: start: 20250714, end: 20250806
  35. LEVOTHYROXINE SODIUM [Concomitant]
     Active Substance: LEVOTHYROXINE SODIUM
     Indication: Autoimmune hypothyroidism
     Dosage: 75 MICROGRAM, ONCE A DAY
     Route: 061
     Dates: start: 20250807, end: 20250820
  36. LEVOTHYROXINE SODIUM [Concomitant]
     Active Substance: LEVOTHYROXINE SODIUM
     Dosage: 75 MICROGRAM, ONCE A DAY
     Route: 061
     Dates: start: 20220202, end: 20250713
  37. LEVOTHYROXINE SODIUM [Concomitant]
     Active Substance: LEVOTHYROXINE SODIUM
     Dosage: 75 MILLIGRAM, ONCE A DAY
     Route: 061
     Dates: start: 20250821, end: 20250910
  38. LEVOTHYROXINE SODIUM [Concomitant]
     Active Substance: LEVOTHYROXINE SODIUM
     Dosage: 75 MILLIGRAM, ONCE A DAY
     Route: 061
     Dates: start: 20250911

REACTIONS (1)
  - Hypothyroidism [Recovering/Resolving]

NARRATIVE: CASE EVENT DATE: 20250911
